FAERS Safety Report 11698858 (Version 1)
Quarter: 2015Q4

REPORT INFORMATION
  Report Type: Spontaneous
  Country: BR (occurrence: BR)
  Receive Date: 20151104
  Receipt Date: 20151104
  Transmission Date: 20160304
  Serious: Yes (Other)
  Sender: FDA-Public Use
  Company Number: BR-PFIZER INC-2015369703

PATIENT
  Age: 58 Year
  Sex: Male
  Weight: 70 kg

DRUGS (2)
  1. CELEBRA [Suspect]
     Active Substance: CELECOXIB
     Indication: PAIN
     Dosage: 200 MG, 1 CAPSULE A DAY AS NEEDED
     Route: 048
  2. CELEBRA [Suspect]
     Active Substance: CELECOXIB
     Indication: INFLAMMATION

REACTIONS (3)
  - Pain [Unknown]
  - Osteopenia [Unknown]
  - Condition aggravated [Unknown]
